FAERS Safety Report 9058683 (Version 1)
Quarter: 2013Q1

REPORT INFORMATION
  Report Type: Spontaneous
  Country: PT (occurrence: PT)
  Receive Date: 20130204
  Receipt Date: 20130204
  Transmission Date: 20140127
  Serious: Yes (Hospitalization)
  Sender: FDA-Public Use
  Company Number: PT-ROCHE-702504

PATIENT
  Sex: Female
  Weight: 60 kg

DRUGS (4)
  1. MABTHERA [Suspect]
     Indication: SYSTEMIC LUPUS ERYTHEMATOSUS
     Route: 042
     Dates: start: 20090725, end: 20090807
  2. CORTICOSTEROID NOS [Concomitant]
     Indication: CUTANEOUS LUPUS ERYTHEMATOSUS
     Route: 048
  3. CORTICOSTEROID NOS [Concomitant]
     Route: 048
  4. TALIDOMIDE [Concomitant]
     Indication: CUTANEOUS LUPUS ERYTHEMATOSUS
     Route: 048

REACTIONS (1)
  - Progressive multifocal leukoencephalopathy [Recovered/Resolved]
